FAERS Safety Report 8894128 (Version 1)
Quarter: 2012Q4

REPORT INFORMATION
  Report Type: 
  Country: ES (occurrence: ES)
  Receive Date: 20121108
  Receipt Date: 20121108
  Transmission Date: 20130627
  Serious: Yes (Hospitalization)
  Sender: FDA-Public Use
  Company Number: ES-SHIRE-ALL1-2012-05347

PATIENT
  Age: 52 Year
  Sex: Male
  Weight: 80 kg

DRUGS (2)
  1. VPRIV [Suspect]
     Indication: GAUCHER^S DISEASE
     Dosage: 2400 IU, 1x/2wks
     Route: 041
     Dates: start: 201104, end: 2012
  2. ADIRO [Concomitant]
     Indication: CEREBROVASCULAR ACCIDENT
     Dosage: UNK, Unknown
     Route: 065

REACTIONS (3)
  - Adenocarcinoma of colon [Unknown]
  - Wound dehiscence [Not Recovered/Not Resolved]
  - Iron deficiency anaemia [Unknown]
